FAERS Safety Report 18074160 (Version 4)
Quarter: 2020Q4

REPORT INFORMATION
  Report Type: Spontaneous
  Country: US (occurrence: US)
  Receive Date: 20200727
  Receipt Date: 20201211
  Transmission Date: 20210113
  Serious: Yes (Other)
  Sender: FDA-Public Use
  Company Number: NVSC2020US208242

PATIENT
  Age: 67 Year
  Sex: Female

DRUGS (2)
  1. BEOVU [Suspect]
     Active Substance: BROLUCIZUMAB-DBLL
     Indication: NEOVASCULAR AGE-RELATED MACULAR DEGENERATION
     Dosage: 6 MG, QMO, LEFT EYE
     Route: 047
     Dates: start: 20200617
  2. EYLEA [Suspect]
     Active Substance: AFLIBERCEPT
     Indication: NEOVASCULAR AGE-RELATED MACULAR DEGENERATION
     Dosage: UNK (7 INJECTIONS), LEFT EYE
     Route: 065

REACTIONS (6)
  - Retinal vasculitis [Unknown]
  - Retinal haemorrhage [Unknown]
  - Blindness unilateral [Unknown]
  - Retinal artery occlusion [Unknown]
  - Anterior chamber inflammation [Unknown]
  - Eye inflammation [Unknown]

NARRATIVE: CASE EVENT DATE: 20200717
